FAERS Safety Report 4711605-2 (Version None)
Quarter: 2005Q3

REPORT INFORMATION
  Report Type: 
  Country: None (occurrence: None)
  Receive Date: 20050708
  Receipt Date: 20050708
  Transmission Date: 20060218
  Serious: Yes (Other)
  Sender: FDA-Public Use
  Company Number: None

PATIENT
  Age: 55 Year
  Sex: Female
  Weight: 71.6683 kg

DRUGS (2)
  1. ENBREL [Suspect]
     Indication: RHEUMATOID ARTHRITIS
     Dosage: 25 MG   TWICE WEEKLY  SUBCUTANEO
     Route: 058
     Dates: start: 20020401, end: 20030422
  2. METHOTREXATE [Concomitant]

REACTIONS (1)
  - HODGKIN'S DISEASE [None]
